FAERS Safety Report 4926990-6 (Version None)
Quarter: 2006Q1

REPORT INFORMATION
  Report Type: 
  Country: None (occurrence: None)
  Receive Date: 20060228
  Receipt Date: 20050928
  Transmission Date: 20060701
  Serious: Yes (Other)
  Sender: FDA-Public Use
  Company Number: US-GLAXOSMITHKLINE-A0576263A

PATIENT
  Age: 24 Year
  Sex: Female

DRUGS (8)
  1. LAMICTAL [Suspect]
     Indication: PARTIAL SEIZURES
     Route: 048
  2. KEPPRA [Suspect]
  3. ALDACTONE [Concomitant]
  4. SYNTHROID [Concomitant]
  5. SINGULAIR [Concomitant]
  6. CLARITIN [Concomitant]
  7. ORTHO TRI-CYCLEN [Concomitant]
  8. PROTONIX [Concomitant]

REACTIONS (4)
  - CONVULSION [None]
  - DRUG INEFFECTIVE [None]
  - PHARMACEUTICAL PRODUCT COMPLAINT [None]
  - UNDERDOSE [None]
